FAERS Safety Report 9892283 (Version 2)
Quarter: 2014Q1

REPORT INFORMATION
  Report Type: Report from Study
  Country: DE (occurrence: DE)
  Receive Date: 20140212
  Receipt Date: 20140227
  Transmission Date: 20141002
  Serious: Yes (Hospitalization)
  Sender: FDA-Public Use
  Company Number: PHHO2014DE002180

PATIENT
  Sex: 0

DRUGS (5)
  1. ENALAPRIL [Suspect]
     Indication: HYPERTENSION
     Dosage: 20 MG, QD
     Dates: end: 20140119
  2. OZUDREX [Suspect]
     Indication: RETINAL VEIN OCCLUSION
     Dosage: UNK
     Route: 031
     Dates: start: 20121105
  3. HCT BETA [Suspect]
     Indication: HYPERTENSION
     Dosage: 12.5 MG, QD
     Dates: start: 20121101, end: 20140119
  4. NEPRESOL [Suspect]
     Indication: HYPERTENSION
     Dosage: 150 MG, QD
     Dates: start: 20121101, end: 20140119
  5. ASS [Concomitant]
     Indication: RETINAL VEIN OCCLUSION
     Dosage: 100 MG, QD
     Dates: start: 20121101

REACTIONS (4)
  - Aortic dissection [Recovered/Resolved]
  - Hypokalaemia [Recovered/Resolved]
  - Hypertension [Recovered/Resolved]
  - Adrenal adenoma [Not Recovered/Not Resolved]
